FAERS Safety Report 5631516-8 (Version None)
Quarter: 2008Q1

REPORT INFORMATION
  Report Type: 
  Country: None (occurrence: None)
  Receive Date: 20080215
  Receipt Date: 20080205
  Transmission Date: 20080703
  Serious: Yes (Other)
  Sender: FDA-Public Use
  Company Number: 231324J08USA

PATIENT
  Age: 39 Year
  Sex: Female
  Weight: 122.9248 kg

DRUGS (4)
  1. REBIF [Suspect]
     Indication: MULTIPLE SCLEROSIS
     Dosage: 44 MCG, SUBCUTANEOUS
     Route: 058
     Dates: start: 20070205, end: 20071101
  2. EFFEXOR XR [Concomitant]
  3. OXYCONTIN [Concomitant]
  4. NEURONTIN [Concomitant]

REACTIONS (5)
  - DRUG TOLERANCE DECREASED [None]
  - FATIGUE [None]
  - FEELING ABNORMAL [None]
  - NEUROENDOCRINE TUMOUR [None]
  - PAIN [None]
